FAERS Safety Report 15819423 (Version 1)
Quarter: 2019Q1

REPORT INFORMATION
  Report Type: Spontaneous
  Country: SE (occurrence: SE)
  Receive Date: 20190114
  Receipt Date: 20190114
  Transmission Date: 20190417
  Serious: Yes (Other)
  Sender: FDA-Public Use
  Company Number: SE-TEVA-2019-SE-998413

PATIENT
  Age: 36 Year
  Sex: Female
  Weight: 60 kg

DRUGS (1)
  1. ESCITALOPRAM [Suspect]
     Active Substance: ESCITALOPRAM OXALATE
     Indication: DEPRESSED MOOD
     Dosage: 15 MILLIGRAM DAILY; ONE TABLET DAILY
     Route: 065
     Dates: start: 20080505, end: 20180914

REACTIONS (1)
  - Persistent genital arousal disorder [Not Recovered/Not Resolved]

NARRATIVE: CASE EVENT DATE: 20180920
